APPROVED DRUG PRODUCT: TESTOSTERONE
Active Ingredient: TESTOSTERONE
Strength: 1.62% (20.25MG/1.25GM ACTUATION)
Dosage Form/Route: GEL, METERED;TRANSDERMAL
Application: A208620 | Product #001 | TE Code: AB
Applicant: ENCUBE ETHICALS PRIVATE LTD
Approved: Apr 10, 2019 | RLD: No | RS: No | Type: RX